FAERS Safety Report 17935105 (Version 10)
Quarter: 2020Q3

REPORT INFORMATION
  Report Type: Spontaneous
  Country: US (occurrence: US)
  Receive Date: 20200624
  Receipt Date: 20200923
  Transmission Date: 20201103
  Serious: Yes (Other)
  Sender: FDA-Public Use
  Company Number: US-PFIZER INC-2020241501

PATIENT
  Age: 79 Year
  Sex: Female
  Weight: 86 kg

DRUGS (7)
  1. LYRICA CR [Suspect]
     Active Substance: PREGABALIN
     Indication: PERIPHERAL VENOUS DISEASE
  2. LYRICA CR [Suspect]
     Active Substance: PREGABALIN
     Indication: DIABETES MELLITUS
     Dosage: 100 MG, 2X/DAY
     Dates: start: 2020, end: 2020
  3. LYRICA CR [Suspect]
     Active Substance: PREGABALIN
     Indication: OEDEMA PERIPHERAL
  4. LYRICA CR [Suspect]
     Active Substance: PREGABALIN
     Indication: ARTHROPATHY
  5. LYRICA CR [Suspect]
     Active Substance: PREGABALIN
     Indication: NEUROPATHY PERIPHERAL
  6. LYRICA CR [Suspect]
     Active Substance: PREGABALIN
     Indication: HYPOAESTHESIA
  7. LYRICA CR [Suspect]
     Active Substance: PREGABALIN
     Indication: MYALGIA
     Dosage: 165 MG (AT NIGHT)
     Route: 048
     Dates: start: 202006, end: 2020

REACTIONS (19)
  - Headache [Not Recovered/Not Resolved]
  - Hyperhidrosis [Unknown]
  - Swelling [Unknown]
  - Intentional product misuse [Unknown]
  - Pain [Not Recovered/Not Resolved]
  - Hypoaesthesia [Unknown]
  - Sensory disturbance [Unknown]
  - Gait disturbance [Unknown]
  - Feeling abnormal [Unknown]
  - Therapeutic product effect incomplete [Unknown]
  - Wrong technique in product usage process [Unknown]
  - Pain in extremity [Unknown]
  - Arthralgia [Unknown]
  - Drug hypersensitivity [Unknown]
  - Peripheral swelling [Not Recovered/Not Resolved]
  - Terminal insomnia [Unknown]
  - Vision blurred [Unknown]
  - Visual impairment [Unknown]
  - Burning sensation [Unknown]
